FAERS Safety Report 12504847 (Version 1)
Quarter: 2016Q2

REPORT INFORMATION
  Report Type: Spontaneous
  Country: FR (occurrence: FR)
  Receive Date: 20160628
  Receipt Date: 20160628
  Transmission Date: 20160815
  Serious: Yes (Hospitalization)
  Sender: FDA-Public Use
  Company Number: FR-TEVA-669025ISR

PATIENT
  Age: 22 Year

DRUGS (1)
  1. ANTADYS [Suspect]
     Active Substance: FLURBIPROFEN
     Indication: DYSMENORRHOEA
     Route: 048

REACTIONS (2)
  - Nephrotic syndrome [Recovering/Resolving]
  - Glomerulonephritis minimal lesion [Recovering/Resolving]

NARRATIVE: CASE EVENT DATE: 20160425
